FAERS Safety Report 5103895-1 (Version None)
Quarter: 2006Q3

REPORT INFORMATION
  Report Type: 
  Country: None (occurrence: None)
  Receive Date: 20060913
  Receipt Date: 20060727
  Transmission Date: 20061208
  Serious: Yes (Death)
  Sender: FDA-Public Use
  Company Number: JP-ALLERGAN-0603088US

PATIENT
  Sex: Female

DRUGS (6)
  1. BOTOX [Suspect]
     Indication: TORTICOLLIS
     Dosage: 40 UNITS, SINGLE
     Route: 030
     Dates: start: 20060529, end: 20060529
  2. CLONAZEPAM [Concomitant]
     Indication: EPILEPSY
     Dates: start: 20040501, end: 20060723
  3. PROPERICIAZINE [Concomitant]
     Indication: MUSCLE TIGHTNESS
     Dates: start: 20040501, end: 20060723
  4. MOSAPRIDE CITRATE [Concomitant]
     Indication: GASTROOESOPHAGEAL REFLUX DISEASE
     Dates: start: 20040501, end: 20060723
  5. FUDOSTEINE [Concomitant]
     Indication: PRODUCTIVE COUGH
     Dates: start: 20040501, end: 20060723
  6. FAMOTIDINE [Concomitant]
     Indication: GASTROOESOPHAGEAL REFLUX DISEASE
     Dates: start: 20040501, end: 20060723

REACTIONS (2)
  - ARRHYTHMIA [None]
  - CARDIO-RESPIRATORY ARREST [None]
